FAERS Safety Report 9188870 (Version 1)
Quarter: 2013Q1

REPORT INFORMATION
  Report Type: Spontaneous
  Country: US (occurrence: US)
  Receive Date: 20130326
  Receipt Date: 20130326
  Transmission Date: 20140127
  Serious: Yes (Hospitalization)
  Sender: FDA-Public Use
  Company Number: US-B.I. PHARMACEUTICALS,INC./RIDGEFIELD-2013-BI-07662BP

PATIENT
  Age: 76 None
  Sex: Male
  Weight: 68 kg

DRUGS (5)
  1. SPIRIVA [Suspect]
     Indication: CHRONIC OBSTRUCTIVE PULMONARY DISEASE
     Dosage: 18 MCG
     Route: 055
     Dates: start: 2012
  2. FUROSEMIDE [Concomitant]
     Dosage: 20 MG
     Route: 048
  3. PREDNISONE [Concomitant]
     Dosage: 2.5 MG
     Route: 048
  4. SYMBICORT [Concomitant]
     Route: 055
  5. PROAIR [Concomitant]
     Route: 055

REACTIONS (3)
  - Pneumonia [Recovered/Resolved]
  - Bronchitis [Recovered/Resolved]
  - Abnormal loss of weight [Not Recovered/Not Resolved]
